FAERS Safety Report 15807205 (Version 1)
Quarter: 2019Q1

REPORT INFORMATION
  Report Type: Spontaneous
  Country: US (occurrence: US)
  Receive Date: 20190110
  Receipt Date: 20190110
  Transmission Date: 20190417
  Serious: Yes (Hospitalization, Other)
  Sender: FDA-Public Use
  Company Number: US-UNICHEM PHARMACEUTICALS (USA) INC-UCM201812-000369

PATIENT
  Age: 77 Year
  Sex: Female

DRUGS (2)
  1. CLONIDINE HCL [Suspect]
     Active Substance: CLONIDINE HYDROCHLORIDE
  2. VALSARTAN. [Concomitant]
     Active Substance: VALSARTAN

REACTIONS (5)
  - Skin discolouration [Unknown]
  - Thermal burn [Unknown]
  - Hospitalisation [Unknown]
  - Blister [Unknown]
  - Pyrexia [Unknown]
